FAERS Safety Report 5206644-1 (Version None)
Quarter: 2006Q4

REPORT INFORMATION
  Report Type: 
  Country: None (occurrence: None)
  Receive Date: 20061026
  Receipt Date: 20060706
  Transmission Date: 20070319
  Serious: No
  Sender: FDA-Public Use
  Company Number: 2006085380

PATIENT
  Age: 52 Year
  Sex: Female
  Weight: 99.7913 kg

DRUGS (10)
  1. LYRICA [Suspect]
     Indication: FIBROMYALGIA
     Dosage: 150 MG (50 MG, 3 IN 1 D), ORAL
     Route: 048
     Dates: start: 20060601, end: 20060701
  2. LEVSIN (HYOSCYAMINE SULFATE) [Concomitant]
  3. BENADRYL [Concomitant]
  4. CALTRATE PLUS (CALCIUM, COLECALCIFEROL, COPPER, MAGNESIUM, MANGANESE, [Concomitant]
  5. MOBIC [Concomitant]
  6. PREVACID [Concomitant]
  7. AMBIEN [Concomitant]
  8. PREMARIN [Concomitant]
  9. KLOR-CON [Concomitant]
  10. INDAPAMIDE [Concomitant]

REACTIONS (2)
  - DIARRHOEA [None]
  - DYSPEPSIA [None]
